FAERS Safety Report 6036437-7 (Version None)
Quarter: 2009Q1

REPORT INFORMATION
  Report Type: 
  Country: None (occurrence: None)
  Receive Date: 20090112
  Receipt Date: 20081223
  Transmission Date: 20090719
  Serious: Yes (Death)
  Sender: FDA-Public Use
  Company Number: 8040763

PATIENT
  Age: 65 Year
  Sex: Male

DRUGS (8)
  1. METHYLPHENIDATE HCL [Suspect]
     Dates: end: 20070101
  2. TRANYLCYPROMINE SULFATE [Suspect]
     Dates: end: 20070101
  3. AMPHETAMINE AND DEXTROAMPHETAMINE SALTS [Suspect]
     Dates: end: 20070101
  4. CARBON MONOXIDE [Suspect]
     Dates: end: 20070101
  5. MODAFINIL [Suspect]
     Dates: end: 20070101
  6. ACETAMINOPHEN AND CODEINE PHOSPHATE [Suspect]
     Dates: end: 20070101
  7. ZOLPIDEM [Suspect]
     Dates: end: 20070101
  8. TIAGABINE HCL [Suspect]
     Dates: end: 20070101

REACTIONS (2)
  - COMPLETED SUICIDE [None]
  - INTENTIONAL DRUG MISUSE [None]
